FAERS Safety Report 6824559-X (Version None)
Quarter: 2010Q3

REPORT INFORMATION
  Report Type: 
  Country: None (occurrence: None)
  Receive Date: 20100708
  Receipt Date: 20070112
  Transmission Date: 20110219
  Serious: No
  Sender: FDA-Public Use
  Company Number: US-PFIZER INC-2006133452

PATIENT
  Sex: Male
  Weight: 81.65 kg

DRUGS (9)
  1. CHANTIX [Suspect]
     Indication: SMOKING CESSATION THERAPY
     Dates: start: 20060821
  2. VIDEX [Concomitant]
  3. VIREAD [Concomitant]
  4. REYATAZ [Concomitant]
  5. TESTOSTERONE [Concomitant]
  6. MOBIC [Concomitant]
     Dates: start: 20060915
  7. SEROQUEL [Concomitant]
  8. CIALIS [Concomitant]
  9. VITAMIN B12 FOR INJECTION [Concomitant]

REACTIONS (2)
  - OEDEMA PERIPHERAL [None]
  - PAIN IN EXTREMITY [None]
